FAERS Safety Report 8565061-7 (Version None)
Quarter: 2012Q3

REPORT INFORMATION
  Report Type: 
  Country: None (occurrence: None)
  Receive Date: 20120803
  Receipt Date: 20120731
  Transmission Date: 20120928
  Serious: Yes (Other)
  Sender: FDA-Public Use
  Company Number: IE-ROCHE-1074281

PATIENT
  Sex: Female
  Weight: 60 kg

DRUGS (9)
  1. AMLODEP [Concomitant]
  2. NEDOLON A [Concomitant]
  3. ARCOXIA [Concomitant]
  4. CAPRINOL [Concomitant]
  5. PERINDOPRIL ERBUMINE [Concomitant]
  6. DONA 200 FOR INJECTION [Concomitant]
  7. OMEPRAZOLE MAGNESIUM [Concomitant]
  8. BONIVA [Suspect]
     Indication: OSTEOPOROSIS
     Route: 048
     Dates: start: 20120307, end: 20120515
  9. CALCIUM CARBONATE [Concomitant]

REACTIONS (4)
  - FATIGUE [None]
  - PAIN IN JAW [None]
  - MYALGIA [None]
  - FLUSHING [None]
